FAERS Safety Report 10811737 (Version 3)
Quarter: 2015Q4

REPORT INFORMATION
  Report Type: Report from Study
  Country: JP (occurrence: JP)
  Receive Date: 20150217
  Receipt Date: 20151230
  Transmission Date: 20160304
  Serious: Yes (Death, Other)
  Sender: FDA-Public Use
  Company Number: JP-AMGEN-JPNCT2015014382

PATIENT
  Age: 61 Year
  Sex: Female
  Weight: 48 kg

DRUGS (10)
  1. ERIBULIN MESILATE [Concomitant]
     Active Substance: ERIBULIN
     Dosage: UNK
     Route: 065
     Dates: start: 20140304
  2. DENOSUMAB [Suspect]
     Active Substance: DENOSUMAB
     Indication: METASTASES TO BONE
     Dosage: 120 MG, UNK
     Route: 058
     Dates: start: 20130326
  3. MUCOSTA [Concomitant]
     Active Substance: REBAMIPIDE
     Dosage: 3 DF, QD
     Route: 048
     Dates: start: 20140204
  4. TS-1 [Concomitant]
     Active Substance: GIMERACIL\OTERACIL\TEGAFUR
     Indication: NEOPLASM MALIGNANT
     Dosage: 50 MG, BID
     Route: 048
     Dates: start: 20130108, end: 20130312
  5. DENOTAS [Concomitant]
     Active Substance: CALCIUM CARBONATE\CHOLECALCIFEROL\MAGNESIUM CARBONATE
     Dosage: 2 DF, QD
     Route: 048
     Dates: start: 20130709
  6. NORVASC [Concomitant]
     Active Substance: AMLODIPINE BESYLATE
     Dosage: 5 MG, QD
     Route: 048
  7. GOSHAJINKIGAN [Concomitant]
     Active Substance: HERBALS
     Dosage: 7.5 MG, QD
     Route: 048
     Dates: start: 20130625
  8. DEPAS [Concomitant]
     Active Substance: ETIZOLAM
     Dosage: 0.5 MG, QD
     Route: 048
     Dates: start: 20140107
  9. AVASTIN [Suspect]
     Active Substance: BEVACIZUMAB
     Indication: NEOPLASM MALIGNANT
     Dosage: 480 MG, QD
     Route: 042
     Dates: start: 20130408, end: 20140218
  10. PACLITAXEL. [Suspect]
     Active Substance: PACLITAXEL
     Indication: NEOPLASM MALIGNANT
     Dosage: 125 MG, QD
     Route: 042
     Dates: start: 20130408, end: 20140218

REACTIONS (5)
  - Osteonecrosis of jaw [Recovering/Resolving]
  - Rash [Recovering/Resolving]
  - Constipation [Recovered/Resolved]
  - Respiratory failure [Fatal]
  - Back pain [Recovering/Resolving]

NARRATIVE: CASE EVENT DATE: 20130416
